FAERS Safety Report 11981924 (Version 1)
Quarter: 2016Q1

REPORT INFORMATION
  Report Type: Report from Study
  Country: US (occurrence: US)
  Receive Date: 20160201
  Receipt Date: 20160201
  Transmission Date: 20160526
  Serious: Yes (Death, Other)
  Sender: FDA-Public Use
  Company Number: US-ROCHE-625097

PATIENT

DRUGS (4)
  1. FLUDARABINE [Suspect]
     Active Substance: FLUDARABINE PHOSPHATE
     Indication: CHRONIC LYMPHOCYTIC LEUKAEMIA
     Dosage: 25 TO30MG/M2, ON DAYS 1 TO 3 OF EACH COURSE (DAYS 2 TO 4 FOR THE FIRST COURSE ONLY)
     Route: 065
  2. RITUXIMAB [Suspect]
     Active Substance: RITUXIMAB
     Indication: CHRONIC LYMPHOCYTIC LEUKAEMIA
     Dosage: CYCLE 1, ON DAY 1
     Route: 042
  3. RITUXIMAB [Suspect]
     Active Substance: RITUXIMAB
     Dosage: IN CYCLES 2 TO 6
     Route: 042
  4. CYCLOPHOSPHAMIDE. [Suspect]
     Active Substance: CYCLOPHOSPHAMIDE
     Indication: CHRONIC LYMPHOCYTIC LEUKAEMIA
     Dosage: 250 TO 300MG/M2 ON DAYS 2 TO 4 OF CYCLE 1 AND DAYS 1 TO 3 OF CYCLES 2 TO 6
     Route: 065

REACTIONS (33)
  - Infection [Fatal]
  - Myeloproliferative neoplasm [Unknown]
  - Neutropenic sepsis [Fatal]
  - Death [Fatal]
  - Pneumonia legionella [Unknown]
  - Varicella zoster virus infection [Unknown]
  - Breast cancer [Unknown]
  - Brain neoplasm [Unknown]
  - Colorectal cancer [Unknown]
  - Drug resistance [Unknown]
  - Listeriosis [Unknown]
  - Prostate cancer [Unknown]
  - Lung neoplasm malignant [Fatal]
  - Lymphoproliferative disorder [Unknown]
  - Skin cancer [Unknown]
  - Ovarian cancer [Unknown]
  - Richter^s syndrome [Fatal]
  - Acute lymphocytic leukaemia [Unknown]
  - Oesophageal adenocarcinoma [Unknown]
  - Autoimmune haemolytic anaemia [Unknown]
  - Myelodysplastic syndrome [Fatal]
  - Pneumocystis jirovecii pneumonia [Unknown]
  - Bronchopulmonary aspergillosis [Unknown]
  - Acute myeloid leukaemia [Unknown]
  - Burkitt^s lymphoma [Unknown]
  - Malignant melanoma [Unknown]
  - Renal cell carcinoma [Unknown]
  - Fungal infection [Unknown]
  - Hodgkin^s disease [Unknown]
  - Neuroendocrine tumour [Unknown]
  - Diffuse large B-cell lymphoma [Unknown]
  - Papillary thyroid cancer [Unknown]
  - Cytopenia [Unknown]
